FAERS Safety Report 6691633-0 (Version None)
Quarter: 2010Q2

REPORT INFORMATION
  Report Type: 
  Country: None (occurrence: None)
  Receive Date: 20100422
  Receipt Date: 20091208
  Transmission Date: 20101027
  Serious: No
  Sender: FDA-Public Use
  Company Number: US-ASTRAZENECA-2009SE30800

PATIENT
  Sex: Female

DRUGS (6)
  1. METOPROLOL SUCCINATE [Suspect]
     Indication: ARRHYTHMIA
     Route: 048
  2. MEXILETINE HYDROCHLORIDE [Suspect]
     Indication: ARRHYTHMIA
     Route: 048
  3. MEXILETINE HYDROCHLORIDE [Suspect]
     Indication: TACHYCARDIA
     Route: 048
  4. SOTALOL HCL [Suspect]
     Indication: ARRHYTHMIA
  5. SOTALOL HCL [Suspect]
     Indication: TACHYCARDIA
  6. THYROID TAB [Concomitant]
     Indication: HYPOTHYROIDISM

REACTIONS (6)
  - DRY SKIN [None]
  - ERYTHEMA [None]
  - EYE SWELLING [None]
  - PRURITUS [None]
  - RASH [None]
  - SKIN EXFOLIATION [None]
